FAERS Safety Report 25030749 (Version 1)
Quarter: 2025Q1

REPORT INFORMATION
  Report Type: Spontaneous
  Country: CA (occurrence: CA)
  Receive Date: 20250303
  Receipt Date: 20250303
  Transmission Date: 20250408
  Serious: Yes (Other)
  Sender: TAKEDA
  Company Number: CA-TAKEDA-2025TUS020661

PATIENT
  Sex: Female
  Weight: 107.8 kg

DRUGS (1)
  1. ENTYVIO [Suspect]
     Active Substance: VEDOLIZUMAB
     Indication: Crohn^s disease

REACTIONS (3)
  - Crohn^s disease [Recovering/Resolving]
  - Musculoskeletal discomfort [Recovering/Resolving]
  - Pelvic discomfort [Recovering/Resolving]
